FAERS Safety Report 7216228-1 (Version None)
Quarter: 2011Q1

REPORT INFORMATION
  Report Type: 
  Country: None (occurrence: None)
  Receive Date: 20110105
  Receipt Date: 20110105
  Transmission Date: 20110831
  Serious: Yes (Hospitalization)
  Sender: FDA-Public Use
  Company Number: None

PATIENT
  Age: 10 Year
  Sex: Female
  Weight: 29 kg

DRUGS (1)
  1. KINERET [Suspect]
     Indication: CHRONIC INFANTILE NEUROLOGICAL CUTANEOUS AND ARTICULAR SYNDROME
     Dosage: 0.38ML SUBCUTANEOUS
     Route: 058
     Dates: start: 20100517, end: 20101014

REACTIONS (11)
  - SEPSIS [None]
  - PYREXIA [None]
  - ABDOMINAL PAIN [None]
  - DECREASED APPETITE [None]
  - HISTIOCYTOSIS HAEMATOPHAGIC [None]
  - RASH [None]
  - PRURITUS [None]
  - TACHYCARDIA [None]
  - BACTERIAL TEST POSITIVE [None]
  - RED BLOOD CELL SEDIMENTATION RATE INCREASED [None]
  - C-REACTIVE PROTEIN INCREASED [None]
